FAERS Safety Report 18199910 (Version 1)
Quarter: 2020Q3

REPORT INFORMATION
  Report Type: Report from Study
  Country: None (occurrence: IT)
  Receive Date: 20200827
  Receipt Date: 20200827
  Transmission Date: 20201103
  Serious: Yes (Other)
  Sender: FDA-Public Use
  Company Number: IT-ABBVIE-20K-083-3484095-00

PATIENT
  Age: 38 Year
  Sex: Male

DRUGS (3)
  1. PLAQUENIL [Suspect]
     Active Substance: HYDROXYCHLOROQUINE SULFATE
     Indication: CORONAVIRUS INFECTION
     Route: 048
     Dates: start: 20200331, end: 20200406
  2. KALETRA [Suspect]
     Active Substance: LOPINAVIR\RITONAVIR
     Indication: CORONAVIRUS INFECTION
     Route: 048
     Dates: start: 20200331, end: 20200407
  3. ZITROMAX [Suspect]
     Active Substance: AZITHROMYCIN
     Indication: CORONAVIRUS INFECTION
     Dosage: 500 MG COMPRESSE RIVESTITE CON FILM
     Route: 048

REACTIONS (3)
  - Hepatotoxicity [Recovered/Resolved]
  - Alanine aminotransferase increased [Recovered/Resolved]
  - Off label use [Recovered/Resolved]

NARRATIVE: CASE EVENT DATE: 20200415
